FAERS Safety Report 4966782-5 (Version None)
Quarter: 2006Q2

REPORT INFORMATION
  Report Type: 
  Country: None (occurrence: None)
  Receive Date: 20060407
  Receipt Date: 20060210
  Transmission Date: 20061013
  Serious: Yes (Hospitalization)
  Sender: FDA-Public Use
  Company Number: US-MERCK-0602USA03532

PATIENT
  Age: 74 Year
  Sex: Female
  Weight: 70 kg

DRUGS (3)
  1. VIOXX [Suspect]
     Indication: ARTHRITIS
     Route: 048
     Dates: start: 20040219, end: 20040401
  2. PLAVIX [Concomitant]
     Route: 048
     Dates: start: 20040401
  3. ASPIRIN [Concomitant]
     Route: 048
     Dates: start: 20030101

REACTIONS (9)
  - ASTHENIA [None]
  - BRADYCARDIA [None]
  - DEPRESSION [None]
  - INTERMITTENT CLAUDICATION [None]
  - ISCHAEMIC STROKE [None]
  - PAIN IN EXTREMITY [None]
  - SARCOIDOSIS [None]
  - SYNCOPE [None]
  - WEIGHT DECREASED [None]
